FAERS Safety Report 16966317 (Version 2)
Quarter: 2019Q4

REPORT INFORMATION
  Report Type: Spontaneous
  Country: FI (occurrence: FI)
  Receive Date: 20191028
  Receipt Date: 20191104
  Transmission Date: 20200122
  Serious: Yes (Other)
  Sender: FDA-Public Use
  Company Number: FI-PFIZER INC-2019461844

PATIENT
  Age: 74 Year
  Sex: Female
  Weight: 78 kg

DRUGS (3)
  1. BECLONASAL FORTE AQUA [Concomitant]
     Dosage: UNK
     Dates: start: 20191012, end: 20191019
  2. TERRA-CORTRIL-P [Suspect]
     Active Substance: HYDROCORTISONE\OXYTETRACYCLINE HYDROCHLORIDE\POLYMYXIN B SULFATE
     Indication: EAR PAIN
     Dosage: 2-3 DROPS TO BOTH EARS, 2X/DAY
     Route: 001
     Dates: start: 20191012, end: 20191013
  3. KEFEXIN [Concomitant]
     Active Substance: CEPHALEXIN
     Dosage: UNK
     Dates: start: 20191012, end: 20191019

REACTIONS (1)
  - Deafness unilateral [Recovered/Resolved]

NARRATIVE: CASE EVENT DATE: 20191012
